FAERS Safety Report 16980540 (Version 1)
Quarter: 2019Q4

REPORT INFORMATION
  Report Type: Spontaneous
  Country: US (occurrence: US)
  Receive Date: 20191031
  Receipt Date: 20191031
  Transmission Date: 20200122
  Serious: Yes (Other)
  Sender: FDA-Public Use
  Company Number: US-009507513-1910USA015444

PATIENT
  Age: 38 Year
  Sex: Female

DRUGS (1)
  1. NUVARING [Suspect]
     Active Substance: ETHINYL ESTRADIOL\ETONOGESTREL
     Indication: HORMONAL CONTRACEPTION
     Dosage: 1 DOSAGE FORM, OVER 10 YEARS
     Route: 067
     Dates: start: 2009

REACTIONS (7)
  - Incorrect product administration duration [Unknown]
  - Restlessness [Unknown]
  - Menorrhagia [Unknown]
  - Joint dislocation [Unknown]
  - Inappropriate schedule of product administration [Unknown]
  - Poisoning [Unknown]
  - Movement disorder [Unknown]

NARRATIVE: CASE EVENT DATE: 201908
